FAERS Safety Report 12424042 (Version 1)
Quarter: 2016Q2

REPORT INFORMATION
  Report Type: Spontaneous
  Country: US (occurrence: None)
  Receive Date: 20160531
  Receipt Date: 20160531
  Transmission Date: 20160815
  Serious: Yes (Hospitalization)
  Sender: FDA-Public Use
  Company Number: None

PATIENT
  Age: 32 Year
  Sex: Female

DRUGS (1)
  1. PROCRIT [Suspect]
     Active Substance: ERYTHROPOIETIN
     Indication: ANAEMIA
     Dosage: 4000 UNITS 3 TIMES PER WEEK
     Route: 058
     Dates: start: 201508

REACTIONS (1)
  - Appendicitis [None]

NARRATIVE: CASE EVENT DATE: 201605
